FAERS Safety Report 11358890 (Version 1)
Quarter: 2015Q3

REPORT INFORMATION
  Report Type: Spontaneous
  Country: US (occurrence: None)
  Receive Date: 20150709
  Receipt Date: 20150709
  Transmission Date: 20151125
  Serious: Yes (Other)
  Sender: FDA-Public Use
  Company Number: PHEH2015US002103

PATIENT
  Age: 56 Year
  Sex: Female

DRUGS (2)
  1. GLEEVEC [Suspect]
     Active Substance: IMATINIB MESYLATE
     Indication: PRODUCT USED FOR UNKNOWN INDICATION
     Dates: start: 201211
  2. MULTIVITAMIN (ASCORBIC ACID, COLECALCIFEROL, NICOTINAMIDE) [Concomitant]

REACTIONS (10)
  - Eye swelling [None]
  - Ocular hyperaemia [None]
  - Impaired healing [None]
  - Cataract [None]
  - Haemoglobin decreased [None]
  - Hypothyroidism [None]
  - Oral mucosal blistering [None]
  - Blister [None]
  - Retinal vascular thrombosis [None]
  - Fatigue [None]
